FAERS Safety Report 15782112 (Version 4)
Quarter: 2019Q2

REPORT INFORMATION
  Report Type: Spontaneous
  Country: US (occurrence: US)
  Receive Date: 20190102
  Receipt Date: 20190604
  Transmission Date: 20190711
  Serious: Yes (Other)
  Sender: FDA-Public Use
  Company Number: US-GLAXOSMITHKLINE-US2018232758

PATIENT
  Age: 65 Year
  Sex: Female

DRUGS (1)
  1. VOLTAREN [Suspect]
     Active Substance: DICLOFENAC SODIUM
     Indication: SCIATICA
     Dosage: UNK UNK, QID
     Dates: start: 20181218, end: 20181219

REACTIONS (6)
  - Paraesthesia [Recovering/Resolving]
  - Product use in unapproved indication [Unknown]
  - Myocardial infarction [Recovering/Resolving]
  - Hypoaesthesia [Recovering/Resolving]
  - Emergency care examination [Unknown]
  - Product administered at inappropriate site [Unknown]

NARRATIVE: CASE EVENT DATE: 20181218
